FAERS Safety Report 24832410 (Version 1)
Quarter: 2025Q1

REPORT INFORMATION
  Report Type: Spontaneous
  Country: IE (occurrence: IE)
  Receive Date: 20250110
  Receipt Date: 20250110
  Transmission Date: 20250409
  Serious: Yes (Other)
  Sender: TEVA
  Company Number: None

PATIENT
  Age: 43 Year
  Sex: Female
  Weight: 100 kg

DRUGS (2)
  1. OLANZAPINE [Suspect]
     Active Substance: OLANZAPINE
     Indication: Schizoaffective disorder
     Route: 065
     Dates: start: 2010, end: 2024
  2. ABILIFY [Suspect]
     Active Substance: ARIPIPRAZOLE
     Indication: Schizoaffective disorder
     Route: 048
     Dates: start: 2010, end: 2024

REACTIONS (5)
  - Feeling abnormal [Recovered/Resolved]
  - Personal relationship issue [Recovered/Resolved]
  - Loss of personal independence in daily activities [Recovered/Resolved]
  - Indifference [Recovered/Resolved]
  - Emotional poverty [Recovered/Resolved]

NARRATIVE: CASE EVENT DATE: 20100101
